FAERS Safety Report 18300400 (Version 1)
Quarter: 2020Q3

REPORT INFORMATION
  Report Type: Spontaneous
  Country: US (occurrence: US)
  Receive Date: 20200922
  Receipt Date: 20200922
  Transmission Date: 20201103
  Serious: Yes (Other)
  Sender: FDA-Public Use
  Company Number: None

PATIENT
  Age: 32 Year
  Sex: Female
  Weight: 103.5 kg

DRUGS (3)
  1. ZYRTEC [Concomitant]
     Active Substance: CETIRIZINE HYDROCHLORIDE
  2. NP THYROID [Suspect]
     Active Substance: LEVOTHYROXINE\LIOTHYRONINE
     Indication: HYPOTHYROIDISM
     Dates: start: 20200401, end: 20200922
  3. PORK THYROID [Concomitant]

REACTIONS (5)
  - Impaired work ability [None]
  - Fatigue [None]
  - Weight increased [None]
  - Depression [None]
  - Pain [None]

NARRATIVE: CASE EVENT DATE: 20200515
